FAERS Safety Report 6293385-5 (Version None)
Quarter: 2009Q3

REPORT INFORMATION
  Report Type: 
  Country: None (occurrence: None)
  Receive Date: 20090731
  Receipt Date: 20090728
  Transmission Date: 20100115
  Serious: Yes (Other)
  Sender: FDA-Public Use
  Company Number: CA-ALLERGAN-0910553US

PATIENT
  Age: 72 Year
  Sex: Female

DRUGS (2)
  1. BOTOX [Suspect]
     Indication: MOVEMENT DISORDER
     Dosage: UNK, SINGLE
     Route: 030
     Dates: start: 20090616, end: 20090616
  2. BOTOX [Suspect]
     Dosage: UNK, SINGLE
     Route: 030

REACTIONS (4)
  - ASTHENIA [None]
  - MASTICATION DISORDER [None]
  - MUSCULAR WEAKNESS [None]
  - NECK PAIN [None]
